FAERS Safety Report 5139379-4 (Version None)
Quarter: 2006Q4

REPORT INFORMATION
  Report Type: 
  Country: None (occurrence: None)
  Receive Date: 20061024
  Receipt Date: 20061010
  Transmission Date: 20070319
  Serious: Yes (Death)
  Sender: FDA-Public Use
  Company Number: 2006S1008298

PATIENT
  Age: 26 Year
  Sex: Female

DRUGS (1)
  1. CLOZAPINE TALBETS (100 MG) [Suspect]
     Dosage: 300 MG; QHS; PO
     Route: 048
     Dates: end: 20060101

REACTIONS (1)
  - DEATH [None]
